FAERS Safety Report 7755282-5 (Version None)
Quarter: 2011Q3

REPORT INFORMATION
  Report Type: 
  Country: None (occurrence: None)
  Receive Date: 20110916
  Receipt Date: 20110913
  Transmission Date: 20111222
  Serious: Yes (Hospitalization)
  Sender: FDA-Public Use
  Company Number: AU-PFIZER INC-2011214359

PATIENT
  Sex: Male

DRUGS (4)
  1. CHLORVESCENT [Concomitant]
  2. MAGMIN [Concomitant]
  3. INSPRA [Suspect]
     Indication: GITELMAN'S SYNDROME
     Dosage: 25 MG, 1X/DAY IN THE MORNING
  4. ASPRO [Concomitant]
     Dosage: UNK, DAILY

REACTIONS (2)
  - HYPOKALAEMIA [None]
  - HYPOMAGNESAEMIA [None]
